FAERS Safety Report 5498983-4 (Version None)
Quarter: 2007Q4

REPORT INFORMATION
  Report Type: 
  Country: None (occurrence: None)
  Receive Date: 20071026
  Receipt Date: 20070703
  Transmission Date: 20080405
  Serious: No
  Sender: FDA-Public Use
  Company Number: A0651036A

PATIENT
  Age: 64 Year
  Sex: Female

DRUGS (7)
  1. ADVAIR DISKUS 100/50 [Suspect]
     Indication: ASTHMA
     Dosage: 1PUFF TWICE PER DAY
     Route: 055
     Dates: start: 20000101
  2. TRIAMTERENE AND HYDROCHLOROTHIAZIDE [Concomitant]
  3. ASPIRIN [Concomitant]
  4. PRILOSEC [Concomitant]
  5. ATENOLOL [Concomitant]
  6. LIPITOR [Concomitant]
  7. SYNTHROID [Concomitant]

REACTIONS (5)
  - COUGH [None]
  - DRUG INEFFECTIVE [None]
  - DYSPNOEA [None]
  - PHARMACEUTICAL PRODUCT COMPLAINT [None]
  - RESPIRATORY DISORDER [None]
